FAERS Safety Report 9718905 (Version 1)
Quarter: 2013Q4

REPORT INFORMATION
  Report Type: Spontaneous
  Country: KR (occurrence: None)
  Receive Date: 20131126
  Receipt Date: 20131126
  Transmission Date: 20140711
  Serious: Yes (Hospitalization)
  Sender: FDA-Public Use
  Company Number: 2013P1021393

PATIENT
  Age: 62 Year
  Sex: Male

DRUGS (7)
  1. METFORMIN [Suspect]
     Dosage: 1000 MG
  2. AMLODIPINE [Concomitant]
  3. VALSARTAN [Concomitant]
  4. CALCIUM CARBONATE [Concomitant]
  5. VITAMIN B AND C [Concomitant]
  6. COMPLEX [Concomitant]
  7. GLICLAZIDE [Concomitant]

REACTIONS (1)
  - Encephalopathy [None]
